FAERS Safety Report 9975971 (Version 5)
Quarter: 2014Q2

REPORT INFORMATION
  Report Type: Spontaneous
  Country: JP (occurrence: JP)
  Receive Date: 20140306
  Receipt Date: 20140528
  Transmission Date: 20141212
  Serious: Yes (Hospitalization, Other)
  Sender: FDA-Public Use
  Company Number: JP-PFIZER INC-2014049751

PATIENT
  Age: 66 Year
  Sex: Male
  Weight: 56 kg

DRUGS (11)
  1. CELECOX [Suspect]
     Indication: POSTOPERATIVE ANALGESIA
     Dosage: 400MG AND 200 MG
     Route: 048
     Dates: start: 20140117, end: 20140117
  2. CELECOX [Suspect]
     Dosage: 200 MG, 2X/DAY
     Route: 048
     Dates: start: 20140118, end: 20140125
  3. CEFAMEZIN [Suspect]
     Indication: INFECTION PROPHYLAXIS
     Dosage: 1 G, 2X/DAY
     Route: 041
     Dates: start: 20140116, end: 20140118
  4. SAWACILLIN [Suspect]
     Indication: INFECTION PROPHYLAXIS
     Dosage: 250 MG, 4X/DAY
     Route: 048
     Dates: start: 20140118, end: 20140122
  5. PHYSIO [Concomitant]
     Dosage: UNK
     Dates: start: 20140116, end: 20140116
  6. BFLUID [Concomitant]
     Dosage: UNK
     Dates: start: 20140116, end: 20140116
  7. GASTER [Concomitant]
     Dosage: 20 MG
     Dates: start: 20140116, end: 20140116
  8. ADONA [Concomitant]
     Dosage: UNK
     Dates: start: 20140116, end: 20140116
  9. TRANSAMIN [Concomitant]
     Dosage: UNK
     Dates: start: 20140116, end: 20140116
  10. EXCEGRAN [Concomitant]
     Dosage: UNK
  11. CERNILTON [Concomitant]
     Dosage: UNK

REACTIONS (2)
  - Rash generalised [Recovering/Resolving]
  - Toxic skin eruption [Recovering/Resolving]
